FAERS Safety Report 8495512-8 (Version None)
Quarter: 2012Q3

REPORT INFORMATION
  Report Type: 
  Country: None (occurrence: None)
  Receive Date: 20120709
  Receipt Date: 20120705
  Transmission Date: 20120928
  Serious: Yes (Life-Threatening, Hospitalization)
  Sender: FDA-Public Use
  Company Number: IT-PFIZER INC-2012133255

PATIENT
  Age: 49 Year
  Sex: Male

DRUGS (8)
  1. LEUCOVORIN CALCIUM [Suspect]
     Indication: PRODUCT USED FOR UNKNOWN INDICATION
     Dosage: UNK
     Dates: start: 20120511, end: 20120511
  2. ASPIRIN [Suspect]
     Dosage: 100 MG, DAILY
     Route: 048
     Dates: start: 20120101
  3. FLUOROURACIL [Concomitant]
     Dosage: UNK
     Dates: start: 20120511, end: 20120511
  4. KETOROLAC TROMETHAMINE [Suspect]
     Indication: PRODUCT USED FOR UNKNOWN INDICATION
     Dosage: 1 DF (30 MG/ML), TOTAL
     Route: 030
     Dates: start: 20120510, end: 20120510
  5. ELOXATIN [Suspect]
     Indication: COLON CANCER
     Dosage: 140 MG, TOTAL
     Route: 042
     Dates: start: 20120509, end: 20120509
  6. RAMIPRIL [Suspect]
     Indication: HYPERTENSION
     Dosage: 2.5 MG, 1X/DAY
     Route: 048
     Dates: start: 20120101, end: 20120509
  7. LEVOFLOXACIN [Suspect]
     Indication: PYREXIA
     Dosage: 500 MG (ONE DOSE FORM), DAILY
     Route: 048
     Dates: start: 20120509, end: 20120519
  8. ESOMEPRAZOLE MAGNESIUM [Concomitant]

REACTIONS (5)
  - RENAL FAILURE ACUTE [None]
  - ANAEMIA [None]
  - INTRAVASCULAR HAEMOLYSIS [None]
  - METABOLIC ACIDOSIS [None]
  - HYPERKALAEMIA [None]
